FAERS Safety Report 14912262 (Version 3)
Quarter: 2024Q3

REPORT INFORMATION
  Report Type: Spontaneous
  Country: US (occurrence: US)
  Receive Date: 20180518
  Receipt Date: 20240824
  Transmission Date: 20241017
  Serious: Yes (Death, Life-Threatening, Hospitalization, Other)
  Sender: ALKEM
  Company Number: None

PATIENT
  Age: 69 Year
  Sex: Female

DRUGS (5)
  1. MYCOPHENOLATE MOFETIL [Suspect]
     Active Substance: MYCOPHENOLATE MOFETIL
     Indication: Immunosuppression
     Dosage: UNK
     Route: 065
  2. TACROLIMUS [Suspect]
     Active Substance: TACROLIMUS
     Indication: Immunosuppression
     Dosage: UNK
     Route: 065
  3. CYCLOPHOSPHAMIDE [Suspect]
     Active Substance: CYCLOPHOSPHAMIDE
     Indication: Immunosuppression
     Dosage: UNK
     Route: 065
  4. IPILIMUMAB [Suspect]
     Active Substance: IPILIMUMAB
     Indication: Neuroendocrine carcinoma of the skin
     Dosage: UNK (EVERY 1 CYCLE)
     Route: 065
  5. NIVOLUMAB [Suspect]
     Active Substance: NIVOLUMAB

REACTIONS (9)
  - Multiple organ dysfunction syndrome [Fatal]
  - Conduction disorder [Fatal]
  - Atrioventricular block [Fatal]
  - Bundle branch block left [Fatal]
  - Septic shock [Fatal]
  - Respiratory failure [Fatal]
  - Bacteraemia [Fatal]
  - Neutropenia [Fatal]
  - Disease progression [Fatal]
